FAERS Safety Report 15837415 (Version 1)
Quarter: 2018Q4

REPORT INFORMATION
  Report Type: Spontaneous
  Country: US (occurrence: US)
  Receive Date: 20181221
  Receipt Date: 20181221
  Transmission Date: 20190205
  Serious: No
  Sender: FDA-Public Use
  Company Number: None

PATIENT
  Age: 46 Year
  Sex: Male

DRUGS (2)
  1. TALTZ [Suspect]
     Active Substance: IXEKIZUMAB
     Dosage: ?          OTHER FREQUENCY:AT WEEK 2 AS DIREC;?
     Route: 058
     Dates: start: 201812
  2. TALTZ [Suspect]
     Active Substance: IXEKIZUMAB
     Indication: PSORIASIS
     Dosage: INJECT 160MG (2 PENS) SUBCUTANEOUSLY AT WEEK 0, 1HEN?80MG (1 PEN) AT WEEK 2 AS DIRECTED?
     Route: 058
     Dates: start: 201812

REACTIONS (3)
  - Chills [None]
  - Bone pain [None]
  - Contusion [None]
